FAERS Safety Report 4404612-0 (Version None)
Quarter: 2004Q3

REPORT INFORMATION
  Report Type: 
  Country: None (occurrence: None)
  Receive Date: 20040720
  Receipt Date: 20040705
  Transmission Date: 20050211
  Serious: Yes (Hospitalization)
  Sender: FDA-Public Use
  Company Number: 237330

PATIENT
  Age: 11 Year
  Sex: Male
  Weight: 31 kg

DRUGS (3)
  1. NORDITROPIN SIMPLEXX (SOMATROPIN) SOLUTION FOR INJECTION, 3.3MG/ML [Suspect]
     Indication: GROWTH HORMONE DEFICIENCY
     Dosage: 0.8 MG/S.C., SUBCUTANEOUS
     Route: 058
     Dates: start: 20030901
  2. NORDIPEN 5(-) [Concomitant]
  3. NOVOFINE [Concomitant]

REACTIONS (2)
  - PETECHIAE [None]
  - PRURITUS [None]
